FAERS Safety Report 19075009 (Version 1)
Quarter: 2021Q1

REPORT INFORMATION
  Report Type: Spontaneous
  Country: CA (occurrence: CA)
  Receive Date: 20210331
  Receipt Date: 20210331
  Transmission Date: 20210420
  Serious: Yes (Other)
  Sender: FDA-Public Use
  Company Number: CA-JNJFOC-20210350221

PATIENT
  Age: 68 Year
  Sex: Female
  Weight: 68 kg

DRUGS (3)
  1. PREDNISONE. [Concomitant]
     Active Substance: PREDNISONE
     Route: 065
  2. REMICADE [Suspect]
     Active Substance: INFLIXIMAB
     Indication: CROHN^S DISEASE
     Route: 042
  3. IMURAN [Concomitant]
     Active Substance: AZATHIOPRINE
     Route: 065

REACTIONS (11)
  - Skin cancer [Recovered/Resolved]
  - Eye infection viral [Recovered/Resolved]
  - Inappropriate schedule of product administration [Recovered/Resolved]
  - Intentional product use issue [Recovered/Resolved]
  - Off label use [Recovered/Resolved]
  - Weight increased [Recovered/Resolved]
  - Blood pressure decreased [Recovered/Resolved]
  - Headache [Recovered/Resolved]
  - Influenza [Recovered/Resolved]
  - Heart rate decreased [Recovered/Resolved]
  - Incorrect dose administered [Recovered/Resolved]
